FAERS Safety Report 9737110 (Version 2)
Quarter: 2014Q1

REPORT INFORMATION
  Report Type: Spontaneous
  Country: US (occurrence: US)
  Receive Date: 20131206
  Receipt Date: 20140307
  Transmission Date: 20141002
  Serious: No
  Sender: FDA-Public Use
  Company Number: US-TEVA-449616USA

PATIENT
  Age: 19 Year
  Sex: Female
  Weight: 58.11 kg

DRUGS (3)
  1. PRENATAL VITAMINS [Concomitant]
     Indication: ALOPECIA
  2. BIOTIN [Concomitant]
     Indication: ALOPECIA
  3. PLAN B ONE-STEP [Suspect]
     Indication: POST COITAL CONTRACEPTION
     Dosage: 1.5 MILLIGRAM DAILY;
     Route: 048
     Dates: start: 20131123, end: 20131123

REACTIONS (4)
  - Somnolence [Recovered/Resolved]
  - Vision blurred [Recovered/Resolved]
  - Pelvic pain [Recovered/Resolved]
  - Headache [Recovered/Resolved]
